FAERS Safety Report 19724363 (Version 1)
Quarter: 2021Q3

REPORT INFORMATION
  Report Type: Spontaneous
  Country: NL (occurrence: NL)
  Receive Date: 20210819
  Receipt Date: 20210819
  Transmission Date: 20211014
  Serious: Yes (Death, Other)
  Sender: FDA-Public Use
  Company Number: NL-PFIZER INC-202101031324

PATIENT
  Age: 69 Year
  Sex: Male

DRUGS (5)
  1. CYTARABINE. [Suspect]
     Active Substance: CYTARABINE
     Indication: ACUTE MYELOID LEUKAEMIA
     Dosage: 200 MG/M2
     Dates: start: 20210621, end: 20210627
  2. CARBIDOPA. [Concomitant]
     Active Substance: CARBIDOPA
     Indication: PARKINSON^S DISEASE
  3. MIDOSTAURIN [Suspect]
     Active Substance: MIDOSTAURIN
     Indication: ACUTE MYELOID LEUKAEMIA
     Dosage: 100 MG
     Dates: start: 20210628, end: 20210712
  4. DAUNORUBICIN [Suspect]
     Active Substance: DAUNORUBICIN
     Dosage: 60 MG/M2
     Dates: start: 20210621, end: 20210623
  5. LEVODOPA [Concomitant]
     Active Substance: LEVODOPA
     Indication: PARKINSON^S DISEASE

REACTIONS (12)
  - Muscle atrophy [Unknown]
  - Vomiting [Unknown]
  - Asthenia [Unknown]
  - Oedema [Unknown]
  - General physical health deterioration [Unknown]
  - Fungal infection [Unknown]
  - Multiple organ dysfunction syndrome [Fatal]
  - Back pain [Unknown]
  - Catabolic state [Fatal]
  - Febrile neutropenia [Unknown]
  - Cachexia [Unknown]
  - Diarrhoea [Unknown]

NARRATIVE: CASE EVENT DATE: 20210628
